FAERS Safety Report 7801718-0 (Version None)
Quarter: 2011Q4

REPORT INFORMATION
  Report Type: 
  Country: None (occurrence: None)
  Receive Date: 20111007
  Receipt Date: 20110923
  Transmission Date: 20120403
  Serious: Yes (Congenital Anomaly)
  Sender: FDA-Public Use
  Company Number: DE-MYLANLABS-2011S1019846

PATIENT
  Age: 0 Year
  Sex: Male
  Weight: 3.6 kg

DRUGS (2)
  1. CITALOPRAM HYDROBROMIDE [Suspect]
     Dosage: 20 [(-5) MG/D ]
     Route: 064
  2. FOLIO [Concomitant]
     Route: 064

REACTIONS (3)
  - ATRIAL SEPTAL DEFECT [None]
  - HAEMANGIOMA CONGENITAL [None]
  - MATERNAL EXPOSURE DURING PREGNANCY [None]
